FAERS Safety Report 4929392-1 (Version None)
Quarter: 2006Q1

REPORT INFORMATION
  Report Type: 
  Country: None (occurrence: None)
  Receive Date: 20060224
  Receipt Date: 20060215
  Transmission Date: 20060701
  Serious: Yes (Hospitalization)
  Sender: FDA-Public Use
  Company Number: 2006-02-0334

PATIENT
  Age: 73 Year
  Sex: Male
  Weight: 78 kg

DRUGS (16)
  1. BETAMETHASONE SODIUM PHOSPHATE [Suspect]
     Indication: CHRONIC OBSTRUCTIVE PULMONARY DISEASE
     Dosage: 1 DF BID INHALATION
     Route: 055
     Dates: start: 20060108, end: 20060112
  2. SERETIDE (SALMETEROL XINAFOATE/FLUTICASONE PROPIONATE) [Suspect]
     Indication: CHRONIC OBSTRUCTIVE PULMONARY DISEASE
     Dosage: 2 DF BID INHALATION
     Route: 055
     Dates: start: 20060105, end: 20060112
  3. SOLUPRED  EFFERVESCENT TABLETS [Suspect]
     Indication: CHRONIC OBSTRUCTIVE PULMONARY DISEASE
     Dosage: 40 MG BID ORAL
     Route: 048
     Dates: start: 20060108, end: 20060112
  4. FUROSEMIDE [Concomitant]
  5. LANTUS [Concomitant]
  6. IRBESARTAN [Concomitant]
  7. PLAVIX [Concomitant]
  8. KARDEGIC SACHETS (ACETLYSALICYLATE LYSINE) [Concomitant]
  9. ZOCOR [Concomitant]
  10. BRONCHOKOD [Concomitant]
  11. GOMENOL (NIAOULI OIL) [Concomitant]
  12. AEROSOL SOLUTION UNKNOWN [Concomitant]
  13. SURBRONC AEROSOL SOLUTION [Concomitant]
  14. CEFAPEROS [Concomitant]
  15. RHINOTROPHYL NASAL SOLUTION (TENOIC ACID / ETHANOLAMINE OLEATE) NAS AE [Concomitant]
  16. CREON [Concomitant]

REACTIONS (8)
  - APHASIA [None]
  - APRAXIA [None]
  - BLOOD PRESSURE SYSTOLIC INCREASED [None]
  - HEMIPARESIS [None]
  - HYPERGLYCAEMIA [None]
  - MALAISE [None]
  - METABOLIC ACIDOSIS [None]
  - RESPIRATORY RATE INCREASED [None]
